FAERS Safety Report 10042513 (Version 2)
Quarter: 2014Q2

REPORT INFORMATION
  Report Type: Spontaneous
  Country: CH (occurrence: CH)
  Receive Date: 20140327
  Receipt Date: 20140520
  Transmission Date: 20141212
  Serious: Yes (Hospitalization)
  Sender: FDA-Public Use
  Company Number: PHHY2014CH034359

PATIENT
  Age: 87 Year
  Sex: Male
  Weight: 56 kg

DRUGS (5)
  1. CLOPIN ECO [Suspect]
     Dosage: 25 MG, TID
     Route: 048
     Dates: end: 20140107
  2. TRANXILIUM [Suspect]
     Dosage: 5 MG, QID
     Route: 048
     Dates: end: 20140107
  3. DISTRANEURIN [Suspect]
     Dosage: 300 MG, QD
     Route: 048
     Dates: end: 20140107
  4. TEMESTA [Suspect]
     Dosage: 1 MG, QD
     Route: 048
     Dates: end: 20140107
  5. ANDROCUR [Concomitant]
     Dosage: 50 MG, BID
     Route: 048

REACTIONS (6)
  - Dementia [Recovered/Resolved]
  - Disturbance in attention [Recovered/Resolved]
  - Dyspnoea [Recovering/Resolving]
  - Increased bronchial secretion [Recovering/Resolving]
  - Somnolence [Recovered/Resolved]
  - Pneumonia [Recovering/Resolving]
